FAERS Safety Report 7985301-2 (Version None)
Quarter: 2011Q4

REPORT INFORMATION
  Report Type: 
  Country: None (occurrence: None)
  Receive Date: 20111216
  Receipt Date: 20111021
  Transmission Date: 20120403
  Serious: Yes (Hospitalization)
  Sender: FDA-Public Use
  Company Number: FR-ROCHE-1001851

PATIENT
  Sex: Female

DRUGS (4)
  1. LAPATINIB [Suspect]
     Route: 048
     Dates: start: 20110401
  2. XELODA [Suspect]
     Indication: BREAST CANCER
     Route: 048
     Dates: start: 20110525, end: 20110727
  3. LAPATINIB [Suspect]
     Indication: BREAST CANCER
     Route: 048
     Dates: start: 20110524, end: 20110727
  4. XELODA [Suspect]
     Route: 048
     Dates: start: 20110401

REACTIONS (1)
  - CYTOLYTIC HEPATITIS [None]
